FAERS Safety Report 6036527-9 (Version None)
Quarter: 2009Q1

REPORT INFORMATION
  Report Type: 
  Country: None (occurrence: None)
  Receive Date: 20090114
  Receipt Date: 20081212
  Transmission Date: 20090719
  Serious: Yes (Hospitalization)
  Sender: FDA-Public Use
  Company Number: US-JNJFOC-20081103345

PATIENT
  Sex: Male
  Weight: 110.91 kg

DRUGS (27)
  1. LEVAQUIN [Suspect]
     Indication: LOCALISED INFECTION
     Route: 065
  2. AMBIEN [Concomitant]
     Indication: INSOMNIA
     Route: 048
  3. VANCOMYCIN HYDROCHLORIDE [Concomitant]
     Indication: CELLULITIS
     Route: 042
  4. LANTUS [Concomitant]
     Indication: DIABETES MELLITUS
     Route: 058
  5. ASPIRIN [Concomitant]
     Indication: PAIN
     Route: 048
  6. LOVENOX [Concomitant]
     Indication: PROPHYLAXIS
     Route: 058
  7. NEXIUM [Concomitant]
     Indication: DYSPEPSIA
     Route: 048
  8. ZOCOR [Concomitant]
     Indication: HYPERLIPIDAEMIA
     Route: 048
  9. POTASSIUM CHLORIDE [Concomitant]
     Indication: HYPOKALAEMIA
     Route: 048
  10. TYLENOL (CAPLET) [Concomitant]
     Indication: PAIN
     Route: 048
  11. PHENARGON [Concomitant]
     Indication: NAUSEA
     Route: 048
  12. SSI [Concomitant]
     Indication: DIABETES MELLITUS
     Route: 058
  13. NIACIN [Concomitant]
     Indication: HIGH DENSITY LIPOPROTEIN DECREASED
     Route: 048
  14. MORPHINE [Concomitant]
     Indication: PAIN
     Route: 042
  15. LISINOPRIL [Concomitant]
     Indication: HYPERTENSION
     Route: 048
  16. LABETALOL [Concomitant]
     Indication: HYPERTENSION
     Route: 048
  17. CLONIDINE [Concomitant]
     Indication: HYPERTENSION
     Route: 048
  18. SODIUM CHLORIDE [Concomitant]
     Route: 042
  19. ROXICET [Concomitant]
     Indication: PAIN
     Route: 048
  20. FERROUS SULFATE TAB [Concomitant]
     Indication: ANAEMIA
     Route: 048
  21. COREG [Concomitant]
     Indication: HYPERTENSION
     Route: 048
  22. BACTRIM [Concomitant]
     Indication: CELLULITIS
     Route: 048
  23. COLACE [Concomitant]
     Route: 048
  24. HYDRALAZINE HCL [Concomitant]
     Route: 042
  25. NITROGLYCERIN [Concomitant]
     Route: 048
  26. NS [Concomitant]
     Route: 042
  27. PERCOCET [Concomitant]
     Indication: PAIN
     Route: 048

REACTIONS (2)
  - CELLULITIS [None]
  - OSTEOMYELITIS [None]
